FAERS Safety Report 8846997 (Version 1)
Quarter: 2012Q4

REPORT INFORMATION
  Report Type: 
  Country: US (occurrence: US)
  Receive Date: 20121018
  Receipt Date: 20121018
  Transmission Date: 20130627
  Serious: Yes (Hospitalization)
  Sender: FDA-Public Use
  Company Number: US-BAYER-2012-106950

PATIENT
  Age: 23 Year
  Sex: Female

DRUGS (7)
  1. YAZ [Suspect]
  2. BEYAZ [Suspect]
  3. YASMIN [Suspect]
     Indication: ACNE
  4. OCELLA [Suspect]
  5. MULTIVITAMIN [Concomitant]
  6. ACETAMINOPHEN [Concomitant]
  7. IBUPROFEN [Concomitant]

REACTIONS (1)
  - Pulmonary embolism [None]
